FAERS Safety Report 22539521 (Version 2)
Quarter: 2023Q2

REPORT INFORMATION
  Report Type: Report from Study
  Country: US (occurrence: US)
  Receive Date: 20230609
  Receipt Date: 20230613
  Transmission Date: 20230721
  Serious: No
  Sender: FDA-Public Use
  Company Number: US-002147023-NVSC2023US129108

PATIENT
  Sex: Female

DRUGS (14)
  1. KETOCONAZOLE [Suspect]
     Active Substance: KETOCONAZOLE
     Indication: Psoriasis
     Dosage: UNK (OTHER DOSAGE: 2 PERCENT SHAMPOO)
     Route: 065
  2. KETOCONAZOLE [Suspect]
     Active Substance: KETOCONAZOLE
     Indication: Psoriasis
  3. OMEPRAZOLE [Suspect]
     Active Substance: OMEPRAZOLE
     Indication: Psoriasis
     Dosage: UNK (OTHER DOSAGE: DELAYED RELEASE (DR/EC))
     Route: 065
  4. OMEPRAZOLE [Suspect]
     Active Substance: OMEPRAZOLE
     Indication: Psoriasis
  5. CLOBETASOL [Suspect]
     Active Substance: CLOBETASOL
     Indication: Psoriasis
     Dosage: UNK
     Route: 065
  6. CLOBETASOL [Suspect]
     Active Substance: CLOBETASOL
     Indication: Psoriasis
  7. CICLOPIROX [Suspect]
     Active Substance: CICLOPIROX
     Indication: Psoriasis
     Dosage: UNK
     Route: 065
  8. CICLOPIROX [Suspect]
     Active Substance: CICLOPIROX
     Indication: Psoriasis
     Dosage: UNK (OTHER DOSAGE: SHAMPOO)
     Route: 065
  9. FLUVASTATIN [Suspect]
     Active Substance: FLUVASTATIN SODIUM
     Indication: Psoriasis
     Dosage: UNK
     Route: 065
  10. FLUVASTATIN [Suspect]
     Active Substance: FLUVASTATIN SODIUM
     Indication: Psoriasis
  11. TERBINAFINE HYDROCHLORIDE [Suspect]
     Active Substance: TERBINAFINE HYDROCHLORIDE
     Indication: Psoriasis
     Dosage: UNK
     Route: 065
  12. TERBINAFINE HYDROCHLORIDE [Suspect]
     Active Substance: TERBINAFINE HYDROCHLORIDE
     Indication: Psoriasis
  13. TRIAMCINOLONE [Suspect]
     Active Substance: TRIAMCINOLONE
     Indication: Psoriasis
     Dosage: UNK
     Route: 065
  14. TRIAMCINOLONE [Suspect]
     Active Substance: TRIAMCINOLONE
     Indication: Psoriasis

REACTIONS (6)
  - Seborrhoeic dermatitis [Unknown]
  - Rash [Unknown]
  - Pruritus [Not Recovered/Not Resolved]
  - Papule [Unknown]
  - Back pain [Unknown]
  - Drug ineffective for unapproved indication [Unknown]
